FAERS Safety Report 24193385 (Version 1)
Quarter: 2024Q3

REPORT INFORMATION
  Report Type: Report from Study
  Country: US (occurrence: None)
  Receive Date: 20240809
  Receipt Date: 20240809
  Transmission Date: 20241016
  Serious: Yes (Hospitalization, Other)
  Sender: ASTRAZENECA
  Company Number: 2022A304664

PATIENT

DRUGS (2)
  1. FARXIGA [Suspect]
     Active Substance: DAPAGLIFLOZIN PROPANEDIOL
     Dosage: 5.0MG UNKNOWN
     Route: 048
  2. FARXIGA [Suspect]
     Active Substance: DAPAGLIFLOZIN PROPANEDIOL
     Dosage: 10.0MG UNKNOWN
     Route: 048

REACTIONS (5)
  - Colon cancer [Unknown]
  - COVID-19 [Unknown]
  - Gait disturbance [Unknown]
  - Gait inability [Unknown]
  - Product dose omission issue [Unknown]
